FAERS Safety Report 11274908 (Version 1)
Quarter: 2015Q3

REPORT INFORMATION
  Report Type: Spontaneous
  Country: BR (occurrence: BR)
  Receive Date: 20150716
  Receipt Date: 20150716
  Transmission Date: 20151125
  Serious: Yes (Other)
  Sender: FDA-Public Use
  Company Number: BR-AMGEN-BRASP2013067390

PATIENT
  Age: 45 Year
  Sex: Female
  Weight: 84 kg

DRUGS (8)
  1. METHOTREXATE [Concomitant]
     Active Substance: METHOTREXATE
     Dosage: 4 TABLETS OF 2.5MG (10MG) WEEKLY
     Dates: start: 201307
  2. ENBREL [Suspect]
     Active Substance: ETANERCEPT
     Dosage: 50 MG, ONCE WEEKLY
     Route: 065
     Dates: end: 2014
  3. HYDROCHLOROTHIAZIDE. [Concomitant]
     Active Substance: HYDROCHLOROTHIAZIDE
     Dosage: 1 TABLET OF 12.5 MG, DAILY
     Dates: start: 2013
  4. PLENANCE [Concomitant]
     Active Substance: ROSUVASTATIN
     Dosage: 1 TABLET OF 10 MG, DAILY
     Dates: start: 2013
  5. LOSARTAN. [Concomitant]
     Active Substance: LOSARTAN
     Dosage: 1 TABLET OF 50 MG, DAILY
     Dates: start: 2013
  6. OMEPRAZOLE. [Concomitant]
     Active Substance: OMEPRAZOLE
     Dosage: 2 TABLETS OF 20MG (40MG) DAILY
     Dates: start: 201309
  7. ARAVA [Concomitant]
     Active Substance: LEFLUNOMIDE
     Dosage: UNK
  8. ENBREL [Suspect]
     Active Substance: ETANERCEPT
     Indication: RHEUMATOID ARTHRITIS
     Dosage: 50 MG, ONCE WEEKLY
     Route: 065
     Dates: start: 20130910

REACTIONS (7)
  - Gallbladder disorder [Unknown]
  - Hypersensitivity [Unknown]
  - Burns second degree [Unknown]
  - Wound [Unknown]
  - Dyspnoea [Unknown]
  - Lung disorder [Unknown]
  - Bronchitis [Unknown]

NARRATIVE: CASE EVENT DATE: 201309
